FAERS Safety Report 6608453-5 (Version None)
Quarter: 2010Q1

REPORT INFORMATION
  Report Type: 
  Country: None (occurrence: None)
  Receive Date: 20100222
  Receipt Date: 20100208
  Transmission Date: 20100710
  Serious: Yes (Death, Hospitalization)
  Sender: FDA-Public Use
  Company Number: A-US2010-33445

PATIENT
  Age: 77 Year
  Sex: Female

DRUGS (2)
  1. VENTAVIS [Suspect]
     Indication: PULMONARY ARTERIAL HYPERTENSION
     Dosage: RESPIRATORY
     Route: 055
     Dates: start: 20090714
  2. REVATIO [Concomitant]

REACTIONS (13)
  - ANOXIC ENCEPHALOPATHY [None]
  - CARDIAC ARREST [None]
  - DISEASE PROGRESSION [None]
  - HYPOKALAEMIA [None]
  - HYPOTENSION [None]
  - MYOCARDIAL INFARCTION [None]
  - MYOCARDIAL ISCHAEMIA [None]
  - PALPITATIONS [None]
  - PULMONARY HYPERTENSION [None]
  - RENAL FAILURE ACUTE [None]
  - RESPIRATORY FAILURE [None]
  - TACHYCARDIA [None]
  - UNRESPONSIVE TO STIMULI [None]
